FAERS Safety Report 9677243 (Version 1)
Quarter: 2013Q4

REPORT INFORMATION
  Report Type: Spontaneous
  Country: US (occurrence: None)
  Receive Date: 20131107
  Receipt Date: 20131107
  Transmission Date: 20140711
  Serious: Yes (Other)
  Sender: FDA-Public Use
  Company Number: None

PATIENT
  Age: 14 Year
  Sex: Female
  Weight: 119.75 kg

DRUGS (1)
  1. ALBUTEROL SULFATE [Suspect]
     Dosage: 4 TIMES A DAY WHILE AWAKE FOUR TIMES DAILY INHALATION
     Route: 055
     Dates: start: 20131010, end: 20131018

REACTIONS (8)
  - Malaise [None]
  - Nasopharyngitis [None]
  - Atypical pneumonia [None]
  - Heart rate increased [None]
  - Blood pressure increased [None]
  - Chest discomfort [None]
  - Dyspnoea [None]
  - Cough [None]
